FAERS Safety Report 14869416 (Version 1)
Quarter: 2018Q2

REPORT INFORMATION
  Report Type: Spontaneous
  Country: US (occurrence: US)
  Receive Date: 20180423
  Receipt Date: 20180423
  Transmission Date: 20180711
  Serious: Yes (Life-Threatening, Hospitalization, Disabling)
  Sender: FDA-Public Use
  Company Number: None

PATIENT
  Age: 34 Year
  Sex: Female
  Weight: 104.33 kg

DRUGS (6)
  1. CITALOPRAM [Suspect]
     Active Substance: CITALOPRAM HYDROBROMIDE
     Indication: MENTAL DISORDER
     Dosage: 2 PILLS TWICE DAILY OR BEDTIME, MOUTH?
     Route: 048
     Dates: start: 20140110, end: 20170420
  2. INHALER [Concomitant]
     Active Substance: UNSPECIFIED INGREDIENT
  3. PAIN MEDICATION [Concomitant]
     Active Substance: UNSPECIFIED INGREDIENT
  4. VITAMINS [Concomitant]
     Active Substance: VITAMINS
  5. CITALOPRAM [Suspect]
     Active Substance: CITALOPRAM HYDROBROMIDE
     Indication: PAIN IN EXTREMITY
     Dosage: 2 PILLS TWICE DAILY OR BEDTIME, MOUTH?
     Route: 048
     Dates: start: 20140110, end: 20170420
  6. CITALOPRAM [Suspect]
     Active Substance: CITALOPRAM HYDROBROMIDE
     Indication: PAIN IN EXTREMITY

REACTIONS (3)
  - Chest X-ray abnormal [None]
  - Hypersensitivity [None]
  - Nuclear magnetic resonance imaging brain abnormal [None]

NARRATIVE: CASE EVENT DATE: 20100721
